FAERS Safety Report 17411608 (Version 1)
Quarter: 2020Q1

REPORT INFORMATION
  Report Type: Spontaneous
  Country: IT (occurrence: IT)
  Receive Date: 20200213
  Receipt Date: 20200213
  Transmission Date: 20200409
  Serious: Yes (Hospitalization)
  Sender: FDA-Public Use
  Company Number: IT-EMD SERONO-E2B_90074815

PATIENT
  Age: 37 Year
  Sex: Female

DRUGS (1)
  1. REBIF [Suspect]
     Active Substance: INTERFERON BETA-1A
     Indication: MULTIPLE SCLEROSIS
     Dosage: 0.5 ML SOLUTION FOR INJECTION IN CARTRIDGE
     Route: 058
     Dates: start: 20120910

REACTIONS (1)
  - Uterine leiomyoma [Recovered/Resolved with Sequelae]

NARRATIVE: CASE EVENT DATE: 20180101
